FAERS Safety Report 5650062-9 (Version None)
Quarter: 2008Q1

REPORT INFORMATION
  Report Type: 
  Country: None (occurrence: None)
  Receive Date: 20080303
  Receipt Date: 20080221
  Transmission Date: 20080703
  Serious: Yes (Life-Threatening)
  Sender: FDA-Public Use
  Company Number: 2008SP001960

PATIENT
  Age: 2 Year
  Sex: Male

DRUGS (2)
  1. BETAMETHASONE [Suspect]
     Indication: BRONCHOSPASM
     Dosage: 10 MG; ONCE
  2. BETAMETHASONE [Suspect]
     Indication: TRACHEITIS
     Dosage: 10 MG; ONCE

REACTIONS (8)
  - ANGIOEDEMA [None]
  - BRONCHOSPASM [None]
  - DYSPNOEA [None]
  - OEDEMA [None]
  - RESPIRATORY RATE INCREASED [None]
  - STRIDOR [None]
  - TRACHEITIS [None]
  - URTICARIA [None]
